FAERS Safety Report 6182460-1 (Version None)
Quarter: 2009Q2

REPORT INFORMATION
  Report Type: 
  Country: None (occurrence: None)
  Receive Date: 20090507
  Receipt Date: 20090504
  Transmission Date: 20091009
  Serious: Yes (Other)
  Sender: FDA-Public Use
  Company Number: DE-ROCHE-628937

PATIENT
  Sex: Male
  Weight: 85 kg

DRUGS (2)
  1. XELODA [Suspect]
     Route: 065
  2. AVASTIN [Suspect]
     Dosage: DOSING AMOUNT 570, NO UNIT REPORTED
     Route: 042
     Dates: start: 20080506, end: 20090305

REACTIONS (1)
  - PANCREATITIS [None]
